FAERS Safety Report 9107120 (Version 1)
Quarter: 2013Q1

REPORT INFORMATION
  Report Type: Spontaneous
  Country: NO (occurrence: NO)
  Receive Date: 20130221
  Receipt Date: 20130221
  Transmission Date: 20140127
  Serious: Yes (Other)
  Sender: FDA-Public Use
  Company Number: NO-BAXTER-2012BAX013426

PATIENT
  Sex: Female

DRUGS (11)
  1. SENDOXAN [Suspect]
     Indication: GRANULOMATOSIS WITH POLYANGIITIS
  2. TACROLIMUS [Suspect]
     Indication: GRANULOMATOSIS WITH POLYANGIITIS
  3. RITUXIMAB [Suspect]
     Indication: GRANULOMATOSIS WITH POLYANGIITIS
     Dosage: X2 INFUSIONS. CUMULATIVE DOSE PRIOR TO AE: 2000MG
     Route: 042
     Dates: start: 200611
  4. RITUXIMAB [Suspect]
     Indication: RHEUMATOID ARTHRITIS
  5. AZATHIOPRINE [Suspect]
     Indication: GRANULOMATOSIS WITH POLYANGIITIS
  6. METHOTREXATE [Suspect]
     Indication: OFF LABEL USE
  7. METHOTREXATE [Suspect]
     Indication: GRANULOMATOSIS WITH POLYANGIITIS
  8. EVEROLIMUS [Suspect]
     Indication: GRANULOMATOSIS WITH POLYANGIITIS
  9. MYCOPHENOLATE MOFETIL [Concomitant]
     Indication: GRANULOMATOSIS WITH POLYANGIITIS
  10. PREDNISOLONE [Concomitant]
     Indication: PRODUCT USED FOR UNKNOWN INDICATION
  11. IVIG [Concomitant]
     Indication: PRODUCT USED FOR UNKNOWN INDICATION

REACTIONS (4)
  - Neutropenia [Recovered/Resolved]
  - Colitis [Unknown]
  - Pyrexia [Unknown]
  - Oral candidiasis [Unknown]
